FAERS Safety Report 7208855-2 (Version None)
Quarter: 2011Q1

REPORT INFORMATION
  Report Type: 
  Country: None (occurrence: None)
  Receive Date: 20110104
  Receipt Date: 20101223
  Transmission Date: 20110831
  Serious: Yes (Hospitalization, Other)
  Sender: FDA-Public Use
  Company Number: US-SANOFI-AVENTIS-2011SA000137

PATIENT
  Age: 72 Year
  Sex: Female
  Weight: 112.7 kg

DRUGS (2)
  1. SUNITINIB [Suspect]
     Indication: ADENOCARCINOMA
     Dosage: ON DAYS 1-28/TOTAL DOSE 1050 MG
     Route: 048
     Dates: start: 20100503, end: 20100524
  2. PLAQUENIL [Suspect]
     Indication: ADENOCARCINOMA
     Dosage: ON DAYS 4-42/ TOTAL DOSE 3400 MG
     Route: 048
     Dates: start: 20100503, end: 20100524

REACTIONS (5)
  - ORAL DYSAESTHESIA [None]
  - HYPOCALCAEMIA [None]
  - DEHYDRATION [None]
  - FATIGUE [None]
  - IMPAIRED GASTRIC EMPTYING [None]
